FAERS Safety Report 8494684-9 (Version None)
Quarter: 2012Q3

REPORT INFORMATION
  Report Type: 
  Country: None (occurrence: None)
  Receive Date: 20120709
  Receipt Date: 20120703
  Transmission Date: 20120928
  Serious: Yes (Other)
  Sender: FDA-Public Use
  Company Number: US-BAYER-201031169NA

PATIENT
  Age: 15 Year
  Sex: Female
  Weight: 63.492 kg

DRUGS (3)
  1. MONODOX [Concomitant]
     Indication: ACNE
     Route: 048
  2. DOXYCYCLINE HYCLATE [Concomitant]
     Indication: ACNE
     Route: 048
  3. YAZ [Suspect]
     Indication: ACNE
     Route: 048
     Dates: start: 20080301, end: 20080815

REACTIONS (8)
  - POST THROMBOTIC SYNDROME [None]
  - PAIN [None]
  - DEPRESSION [None]
  - CHEST PAIN [None]
  - PAIN IN EXTREMITY [None]
  - DEEP VEIN THROMBOSIS [None]
  - OEDEMA PERIPHERAL [None]
  - ANXIETY [None]
